FAERS Safety Report 8965590 (Version 1)
Quarter: 2012Q4

REPORT INFORMATION
  Report Type: Spontaneous
  Country: GB (occurrence: None)
  Receive Date: 20121205
  Receipt Date: 20121205
  Transmission Date: 20130627
  Serious: Yes (Life-Threatening, Hospitalization, Other)
  Sender: FDA-Public Use
  Company Number: AUR-APL-2012-05088

PATIENT
  Age: 84 Year
  Sex: Female

DRUGS (6)
  1. AMOXICILLIN AND CLAVULANIC ACID [Suspect]
     Indication: HOSPITAL ACQUIRED INFECTION
     Route: 048
     Dates: start: 20121018, end: 20121023
  2. AMOXICILLIN AND CLAVULANIC ACID [Suspect]
     Indication: PNEUMONIA
     Route: 048
     Dates: start: 20121018, end: 20121023
  3. TAZOCIN [Suspect]
     Indication: HOSPITAL ACQUIRED INFECTION
     Dates: start: 20121015, end: 20121018
  4. TAZOCIN [Suspect]
     Indication: PNEUMONIA
     Dates: start: 20121015, end: 20121018
  5. BISOPROLOL [Concomitant]
  6. DIGOXIN [Concomitant]

REACTIONS (4)
  - Clostridium difficile infection [None]
  - Diarrhoea [None]
  - Renal failure acute [None]
  - Dehydration [None]
